FAERS Safety Report 7189377-4 (Version None)
Quarter: 2010Q4

REPORT INFORMATION
  Report Type: 
  Country: None (occurrence: None)
  Receive Date: 20101222
  Receipt Date: 20101210
  Transmission Date: 20110411
  Serious: Yes (Life-Threatening, Hospitalization)
  Sender: FDA-Public Use
  Company Number: GB-MYLANLABS-2010S1010440

PATIENT
  Age: 68 Year
  Sex: Female

DRUGS (31)
  1. AZATHIOPRINE [Suspect]
     Indication: CROHN'S DISEASE
     Dates: start: 20080601
  2. AZATHIOPRINE [Suspect]
     Indication: PSORIASIS
     Dates: start: 20080601
  3. AZATHIOPRINE [Suspect]
     Dates: start: 20091001
  4. AZATHIOPRINE [Suspect]
     Dates: start: 20091001
  5. AZATHIOPRINE [Suspect]
     Dates: start: 20091201
  6. AZATHIOPRINE [Suspect]
     Dates: start: 20091201
  7. HUMIRA [Suspect]
     Indication: PRODUCT USED FOR UNKNOWN INDICATION
     Route: 058
     Dates: start: 20080401
  8. INFLIXIMAB [Suspect]
     Indication: CROHN'S DISEASE
     Route: 042
     Dates: start: 20090301
  9. INFLIXIMAB [Suspect]
     Indication: PSORIASIS
     Route: 042
     Dates: start: 20090301
  10. INFLIXIMAB [Suspect]
  11. INFLIXIMAB [Suspect]
  12. STELARA [Suspect]
     Indication: PSORIASIS
     Route: 058
     Dates: start: 20100101
  13. STELARA [Suspect]
     Indication: CROHN'S DISEASE
     Route: 058
     Dates: start: 20100101
  14. STELARA [Suspect]
     Dates: start: 20090901
  15. STELARA [Suspect]
     Dates: start: 20090901
  16. STELARA [Suspect]
     Dates: start: 20091001
  17. STELARA [Suspect]
     Dates: start: 20091001
  18. GABAPENTIN [Concomitant]
     Indication: PRODUCT USED FOR UNKNOWN INDICATION
  19. METOCLOPRAMIDE [Concomitant]
     Indication: PRODUCT USED FOR UNKNOWN INDICATION
  20. ORAMORPH SR [Concomitant]
     Indication: PRODUCT USED FOR UNKNOWN INDICATION
  21. PREDNISOLONE [Concomitant]
     Indication: PRODUCT USED FOR UNKNOWN INDICATION
  22. RABEPRAZOLE SODIUM [Concomitant]
     Indication: PRODUCT USED FOR UNKNOWN INDICATION
  23. METHOTREXATE [Concomitant]
     Indication: PSORIASIS
     Dates: start: 20040101, end: 20060401
  24. USTEKINUMAB [Concomitant]
     Indication: PRODUCT USED FOR UNKNOWN INDICATION
  25. CYCLOPHOSPHAMIDE [Concomitant]
     Indication: PRODUCT USED FOR UNKNOWN INDICATION
     Dates: start: 20100518
  26. DOXORUBICIN [Concomitant]
     Indication: PRODUCT USED FOR UNKNOWN INDICATION
     Dates: start: 20100518
  27. ONCOVIN [Concomitant]
     Indication: PRODUCT USED FOR UNKNOWN INDICATION
     Dates: start: 20100518
  28. PREDNISONE [Concomitant]
     Indication: PRODUCT USED FOR UNKNOWN INDICATION
     Dates: start: 20100518
  29. BUDESONIDE [Concomitant]
     Indication: WEIGHT DECREASED
  30. METHOTREXATE [Concomitant]
     Dates: start: 20040101, end: 20060401
  31. METHOTREXATE [Concomitant]
     Dates: start: 20040101, end: 20060401

REACTIONS (6)
  - CLOSTRIDIAL INFECTION [None]
  - CROHN'S DISEASE [None]
  - DRUG INEFFECTIVE [None]
  - NECK PAIN [None]
  - NEUTROPENIA [None]
  - PERIPHERAL T-CELL LYMPHOMA UNSPECIFIED STAGE IV [None]
